FAERS Safety Report 15356096 (Version 2)
Quarter: 2018Q3

REPORT INFORMATION
  Report Type: Spontaneous
  Country: GR (occurrence: GR)
  Receive Date: 20180906
  Receipt Date: 20180912
  Transmission Date: 20181010
  Serious: Yes (Disabling)
  Sender: FDA-Public Use
  Company Number: GR-PFIZER INC-2018360121

PATIENT
  Age: 47 Year
  Sex: Female

DRUGS (2)
  1. CONTROLOC [Suspect]
     Active Substance: PANTOPRAZOLE SODIUM
     Indication: OESOPHAGITIS
     Dosage: 40 MG, QD
     Route: 048
     Dates: start: 20180319, end: 20180402
  2. CONTROLOC [Suspect]
     Active Substance: PANTOPRAZOLE SODIUM
     Indication: GASTRITIS

REACTIONS (9)
  - Agitation [Recovered/Resolved with Sequelae]
  - Panic attack [Recovered/Resolved with Sequelae]
  - Sleep disorder [Recovered/Resolved with Sequelae]
  - Phobia [Not Recovered/Not Resolved]
  - Dysphoria [Recovered/Resolved with Sequelae]
  - Decreased appetite [Recovered/Resolved with Sequelae]
  - Chromaturia [Recovered/Resolved]
  - Haemoptysis [Recovered/Resolved with Sequelae]
  - Weight decreased [Recovered/Resolved with Sequelae]

NARRATIVE: CASE EVENT DATE: 20180319
